FAERS Safety Report 14843224 (Version 2)
Quarter: 2018Q2

REPORT INFORMATION
  Report Type: Report from Study
  Country: BR (occurrence: BR)
  Receive Date: 20180503
  Receipt Date: 20180509
  Transmission Date: 20180711
  Serious: Yes (Life-Threatening, Hospitalization, Other)
  Sender: FDA-Public Use
  Company Number: PHHY2017BR178330

PATIENT
  Age: 58 Year
  Sex: Female
  Weight: 68 kg

DRUGS (10)
  1. OMEPRAZOLE. [Concomitant]
     Active Substance: OMEPRAZOLE
     Indication: PROPHYLAXIS AGAINST GASTROINTESTINAL ULCER
     Dosage: 2 DF, QD
     Route: 048
  2. TOPIRAMATE. [Concomitant]
     Active Substance: TOPIRAMATE
     Indication: MIGRAINE
     Dosage: 1 DF, QD
     Route: 048
  3. FLUOXETINE [Concomitant]
     Active Substance: FLUOXETINE HYDROCHLORIDE
     Indication: ANXIETY
  4. SANDOSTATIN LAR DEPOT [Suspect]
     Active Substance: OCTREOTIDE ACETATE
     Indication: ACROMEGALY
     Dosage: 1 DF, QMO (CONC: 20 MG)
     Route: 030
     Dates: start: 2010
  5. SANDOSTATIN LAR DEPOT [Suspect]
     Active Substance: OCTREOTIDE ACETATE
     Dosage: 30 MG, QMO
     Route: 030
  6. MORPHINE [Concomitant]
     Active Substance: MORPHINE
     Indication: PAIN
     Dosage: 2 DF, QD
     Route: 048
     Dates: start: 2011
  7. PURAN [Concomitant]
     Active Substance: LEVOTHYROXINE SODIUM
     Indication: HYPOTHYROIDISM
     Dosage: 1 DF, QD (STARTED 12 YEARS AGO)
     Route: 048
  8. FLUOXETINE [Concomitant]
     Active Substance: FLUOXETINE HYDROCHLORIDE
     Indication: DEPRESSION
     Dosage: 4 DF, QD (STARTED 12 YEARS AGO)
     Route: 048
  9. PURAN [Concomitant]
     Active Substance: LEVOTHYROXINE SODIUM
     Indication: THYROID DISORDER
  10. AMITRIPTYLINE [Concomitant]
     Active Substance: AMITRIPTYLINE
     Indication: INSOMNIA
     Dosage: 2 DF, QD (STARTED 10 YEARS AGO)
     Route: 048

REACTIONS (11)
  - Nasopharyngitis [Not Recovered/Not Resolved]
  - Bone cancer [Recovering/Resolving]
  - Influenza [Recovering/Resolving]
  - Feeling abnormal [Recovering/Resolving]
  - Dysstasia [Recovering/Resolving]
  - Breast cancer [Recovering/Resolving]
  - Vomiting [Recovering/Resolving]
  - Brain neoplasm malignant [Recovering/Resolving]
  - Metastases to bone [Recovering/Resolving]
  - Urinary tract infection [Recovering/Resolving]
  - Malaise [Recovering/Resolving]

NARRATIVE: CASE EVENT DATE: 2011
